FAERS Safety Report 26116354 (Version 1)
Quarter: 2025Q4

REPORT INFORMATION
  Report Type: Spontaneous
  Country: US (occurrence: None)
  Receive Date: 20251202
  Receipt Date: 20251202
  Transmission Date: 20260118
  Serious: Yes (Hospitalization)
  Sender: FDA-CTU
  Company Number: None

PATIENT
  Age: 57 Year
  Sex: Female

DRUGS (1)
  1. TALTZ [Suspect]
     Active Substance: IXEKIZUMAB
     Indication: Psoriatic arthropathy
     Dosage: 80MG  Q 4 WEEKS?

REACTIONS (7)
  - Upper respiratory tract infection [None]
  - Nausea [None]
  - Vomiting [None]
  - Dehydration [None]
  - Ischaemia [None]
  - Colitis [None]
  - Feeling abnormal [None]
